FAERS Safety Report 23941680 (Version 2)
Quarter: 2024Q3

REPORT INFORMATION
  Report Type: Spontaneous
  Country: US (occurrence: US)
  Receive Date: 20240605
  Receipt Date: 20240721
  Transmission Date: 20241017
  Serious: Yes (Other)
  Sender: BAYER
  Company Number: US-BAYER-2024A080763

PATIENT
  Age: 31 Year
  Sex: Male

DRUGS (3)
  1. KOVALTRY [Suspect]
     Active Substance: ANTIHEMOPHILIC FACTOR, HUMAN RECOMBINANT
     Indication: Factor VIII deficiency
     Dosage: 3000 IU, BIW
     Route: 042
     Dates: start: 201501
  2. KOVALTRY [Suspect]
     Active Substance: ANTIHEMOPHILIC FACTOR, HUMAN RECOMBINANT
     Indication: Prophylaxis
     Dosage: 3000 IU, BIW
     Route: 042
     Dates: start: 202010
  3. KOVALTRY [Suspect]
     Active Substance: ANTIHEMOPHILIC FACTOR, HUMAN RECOMBINANT
     Indication: Factor VIII deficiency
     Dosage: 2 DF, PRN
     Route: 042
     Dates: start: 202407

REACTIONS (5)
  - Haemorrhage [None]
  - Traumatic haemorrhage [None]
  - Weight decreased [None]
  - Arthropod bite [None]
  - Peripheral swelling [None]

NARRATIVE: CASE EVENT DATE: 20240522
